FAERS Safety Report 5680678-5 (Version None)
Quarter: 2008Q1

REPORT INFORMATION
  Report Type: 
  Country: None (occurrence: None)
  Receive Date: 20080326
  Receipt Date: 20080117
  Transmission Date: 20080703
  Serious: No
  Sender: FDA-Public Use
  Company Number: US-BAUSCH-2008BL000213

PATIENT
  Age: 61 Year
  Sex: Female

DRUGS (5)
  1. LOTEMAX [Suspect]
     Indication: EYE INFLAMMATION
     Route: 047
     Dates: start: 20071217, end: 20080117
  2. LOTEMAX [Suspect]
     Indication: KERATOCONJUNCTIVITIS SICCA
     Route: 047
     Dates: start: 20071217, end: 20080117
  3. RESTASIS [Suspect]
     Indication: EYE INFLAMMATION
     Route: 047
     Dates: start: 20071217
  4. RESTASIS [Suspect]
     Indication: KERATOCONJUNCTIVITIS SICCA
     Route: 047
     Dates: start: 20071217
  5. SYSTANE [Concomitant]
     Indication: KERATOCONJUNCTIVITIS SICCA
     Route: 047

REACTIONS (1)
  - TOOTHACHE [None]
